FAERS Safety Report 8585340-7 (Version None)
Quarter: 2012Q3

REPORT INFORMATION
  Report Type: 
  Country: None (occurrence: None)
  Receive Date: 20120810
  Receipt Date: 20120726
  Transmission Date: 20120928
  Serious: Yes (Other)
  Sender: FDA-Public Use
  Company Number: JP-ASTELLAS-2012US006773

PATIENT
  Sex: Male
  Weight: 73 kg

DRUGS (8)
  1. ERLOTINIB HYDROCHLORIDE [Suspect]
     Dosage: 100 MG, UID/QD
     Route: 048
     Dates: start: 20080829, end: 20081002
  2. CODEINE PHOSPHATE [Concomitant]
     Indication: PRODUCT USED FOR UNKNOWN INDICATION
     Dosage: 6 G, UID/QD
     Route: 048
     Dates: start: 20081016
  3. ERLOTINIB HYDROCHLORIDE [Suspect]
     Indication: NON-SMALL CELL LUNG CANCER
     Dosage: 150 MG, UID/QD
     Route: 048
     Dates: start: 20080725, end: 20080814
  4. METHYLPREDNISOLONE SODIUM SUCCINATE [Concomitant]
     Indication: PRODUCT USED FOR UNKNOWN INDICATION
     Dosage: 1000 MG, UID/QD
     Route: 042
     Dates: start: 20081002, end: 20081003
  5. LEVOFLOXACIN [Concomitant]
     Indication: PRODUCT USED FOR UNKNOWN INDICATION
     Dosage: 400 MG, UID/QD
     Route: 048
     Dates: start: 20081002, end: 20081009
  6. MAXIPIME [Concomitant]
     Indication: PRODUCT USED FOR UNKNOWN INDICATION
     Dosage: 1 G, UID/QD
     Route: 042
     Dates: start: 20081002, end: 20081003
  7. PREDNISOLONE [Concomitant]
     Indication: PRODUCT USED FOR UNKNOWN INDICATION
     Dosage: 60 MG, UID/QD
     Route: 048
     Dates: start: 20081003
  8. ERLOTINIB HYDROCHLORIDE [Suspect]
     Dosage: 125 MG, UID/QD
     Route: 048
     Dates: start: 20080815, end: 20080821

REACTIONS (14)
  - MUSCLE SPASTICITY [None]
  - PNEUMONITIS [None]
  - COUGH [None]
  - DIARRHOEA [None]
  - FATIGUE [None]
  - NASOPHARYNGITIS [None]
  - DERMATITIS ACNEIFORM [None]
  - PRURITUS [None]
  - STOMATITIS [None]
  - SKIN REACTION [None]
  - NEOPLASM MALIGNANT [None]
  - DECREASED APPETITE [None]
  - DYSPNOEA [None]
  - GAMMA-GLUTAMYLTRANSFERASE INCREASED [None]
